FAERS Safety Report 10041586 (Version 2)
Quarter: 2014Q2

REPORT INFORMATION
  Report Type: Spontaneous
  Country: BR (occurrence: BR)
  Receive Date: 20140327
  Receipt Date: 20140402
  Transmission Date: 20141212
  Serious: Yes (Other)
  Sender: FDA-Public Use
  Company Number: BR-PFIZER INC-2014086065

PATIENT
  Age: 77 Year
  Sex: Female
  Weight: 56 kg

DRUGS (6)
  1. LIPITOR [Suspect]
     Indication: BLOOD CHOLESTEROL
     Dosage: 20 UNK, 1X/DAY
     Route: 048
     Dates: start: 20071210
  2. OLMETEC [Suspect]
     Dosage: UNK
     Route: 048
     Dates: start: 20071210
  3. FRONTAL [Concomitant]
     Indication: SLEEP DISORDER
     Dosage: UNK
  4. OMEPRAZOLE [Concomitant]
     Indication: GASTRIC DISORDER
     Dosage: UNK
  5. PAMELOR [Concomitant]
     Dosage: UNK
  6. VENLAFAXINE [Concomitant]
     Indication: DEPRESSION
     Dosage: UNK

REACTIONS (1)
  - Lung neoplasm malignant [Unknown]
